FAERS Safety Report 21492275 (Version 1)
Quarter: 2022Q4

REPORT INFORMATION
  Report Type: Spontaneous
  Country: US (occurrence: US)
  Receive Date: 20221021
  Receipt Date: 20221021
  Transmission Date: 20230112
  Serious: No
  Sender: FDA-Public Use
  Company Number: US-PERRIGO-21US028489

PATIENT
  Age: 68 Year
  Sex: Female
  Weight: 83.9 kg

DRUGS (8)
  1. NICOTINE POLACRILEX [Suspect]
     Active Substance: NICOTINE
     Indication: Smoking cessation therapy
     Dosage: 4 MG, PRN
     Route: 002
     Dates: start: 20210916, end: 20210921
  2. MELATONIN [Concomitant]
     Active Substance: MELATONIN
     Indication: Insomnia
     Dosage: UNKNOWN, AT NIGHT
     Route: 065
  3. TYLENOL                            /00020001/ [Concomitant]
     Indication: Pain
     Dosage: 1300 MG, AT NIGHT
     Route: 065
     Dates: start: 202009
  4. LEVOTHYROXINE [Concomitant]
     Active Substance: LEVOTHYROXINE
     Indication: Thyroid disorder
     Dosage: UNKNOWN, UNKNOWN
     Route: 065
     Dates: start: 2015
  5. PROTONIX                           /00661201/ [Concomitant]
     Indication: Gastrooesophageal reflux disease
     Dosage: UNKNOWN, UNKNOWN
     Route: 065
     Dates: start: 2011
  6. ZOLOFT [Concomitant]
     Active Substance: SERTRALINE HYDROCHLORIDE
     Indication: Depression
     Dosage: 50 MG, UNKNOWN
     Route: 065
     Dates: start: 2017
  7. MIRAPEX [Concomitant]
     Active Substance: PRAMIPEXOLE DIHYDROCHLORIDE
     Indication: Restless legs syndrome
     Dosage: UNKNOWN, UNKNOWN
     Route: 065
     Dates: start: 1991
  8. GLIPIZIDE [Concomitant]
     Active Substance: GLIPIZIDE
     Indication: Blood glucose abnormal
     Dosage: 5 MG, UNKNOWN
     Route: 065
     Dates: start: 2019

REACTIONS (3)
  - Insomnia [Recovered/Resolved]
  - Depressed mood [Unknown]
  - Psychomotor hyperactivity [Unknown]

NARRATIVE: CASE EVENT DATE: 20210917
